FAERS Safety Report 13832292 (Version 1)
Quarter: 2017Q3

REPORT INFORMATION
  Report Type: Spontaneous
  Country: US (occurrence: US)
  Receive Date: 20170803
  Receipt Date: 20170803
  Transmission Date: 20171127
  Serious: No
  Sender: FDA-Public Use
  Company Number: None

PATIENT
  Sex: Female

DRUGS (1)
  1. FORTEO [Suspect]
     Active Substance: TERIPARATIDE
     Indication: SENILE OSTEOPOROSIS
     Route: 058

REACTIONS (6)
  - Blood calcium decreased [None]
  - Back pain [None]
  - Blood sodium decreased [None]
  - Blood creatinine increased [None]
  - Nausea [None]
  - Vomiting [None]
